FAERS Safety Report 6236139-8 (Version None)
Quarter: 2009Q2

REPORT INFORMATION
  Report Type: 
  Country: None (occurrence: None)
  Receive Date: 20090616
  Receipt Date: 20090604
  Transmission Date: 20091009
  Serious: Yes (Other)
  Sender: FDA-Public Use
  Company Number: CHPA2009US13199

PATIENT
  Age: 78 Year
  Sex: Female

DRUGS (10)
  1. MAALOX ADV MAXIMUM STRENGTH ANTACID/ANTIGAS (NCH)(MAGNESIUM HYDROXIDE, [Suspect]
     Indication: CONSTIPATION
     Dosage: SOMETIMES HALF THE BOTTLE, SOMETIMES THE WHOLE BOTTLE, ORAL
     Route: 048
  2. MAALOX ADV MAXIMUM STRENGTH ANTACID/ANTIGAS (NCH)(MAGNESIUM HYDROXIDE, [Suspect]
     Indication: DYSPEPSIA
     Dosage: SOMETIMES HALF THE BOTTLE, SOMETIMES THE WHOLE BOTTLE, ORAL
     Route: 048
  3. MAALOX UNKNOWN (NCH) (UNKNOWN) [Suspect]
     Indication: CONSTIPATION
     Dosage: HALF A BOTTLE OR A WHOLE BOTTLE EACH DAY, ORAL
     Route: 048
  4. MAALOX UNKNOWN (NCH) (UNKNOWN) [Suspect]
     Indication: DYSPEPSIA
     Dosage: HALF A BOTTLE OR A WHOLE BOTTLE EACH DAY, ORAL
     Route: 048
  5. ERYTHROMYCIN [Concomitant]
  6. FUROSEMIDE INTENSOL [Concomitant]
  7. ALTACE [Concomitant]
  8. PREVACID [Concomitant]
  9. MILK OF MAGNESIA TAB [Concomitant]
  10. DRUG THERAPY NOS [Concomitant]

REACTIONS (15)
  - BEDRIDDEN [None]
  - COLON CANCER [None]
  - DIVERTICULITIS [None]
  - DRUG INEFFECTIVE [None]
  - HAEMORRHOIDS [None]
  - HYPERTENSION [None]
  - INTENTIONAL DRUG MISUSE [None]
  - LIQUID PRODUCT PHYSICAL ISSUE [None]
  - OVERDOSE [None]
  - PRODUCT CONTAINER SEAL ISSUE [None]
  - RENAL DISORDER [None]
  - ROAD TRAFFIC ACCIDENT [None]
  - SPINAL DISORDER [None]
  - URINARY INCONTINENCE [None]
  - WHEELCHAIR USER [None]
